FAERS Safety Report 4879273-7 (Version None)
Quarter: 2005Q4

REPORT INFORMATION
  Report Type: 
  Country: None (occurrence: None)
  Receive Date: 20051207
  Receipt Date: 20050114
  Transmission Date: 20060501
  Serious: Yes (Other)
  Sender: FDA-Public Use
  Company Number: 2005014788

PATIENT
  Age: 44 Year
  Sex: Male
  Weight: 78.4723 kg

DRUGS (1)
  1. VIAGRA [Suspect]
     Indication: ERECTILE DYSFUNCTION
     Dosage: 50 MG (50 MG), ORAL
     Route: 048
     Dates: start: 20040704

REACTIONS (2)
  - CYANOPSIA [None]
  - ERECTION INCREASED [None]
